FAERS Safety Report 23388228 (Version 1)
Quarter: 2024Q1

REPORT INFORMATION
  Report Type: Spontaneous
  Country: FR (occurrence: FR)
  Receive Date: 20240110
  Receipt Date: 20240110
  Transmission Date: 20240409
  Serious: Yes (Hospitalization)
  Sender: FDA-Public Use
  Company Number: None

PATIENT
  Age: 37 Year
  Sex: Male

DRUGS (2)
  1. PIPERACILLIN SODIUM\TAZOBACTAM SODIUM [Suspect]
     Active Substance: PIPERACILLIN SODIUM\TAZOBACTAM SODIUM
     Indication: Infection
     Dosage: UNK
     Dates: start: 20231125
  2. LETERMOVIR [Suspect]
     Active Substance: LETERMOVIR
     Indication: Liver transplant
     Dosage: UNK
     Dates: start: 20231213

REACTIONS (1)
  - Hypercreatinaemia [Not Recovered/Not Resolved]

NARRATIVE: CASE EVENT DATE: 20231213
